FAERS Safety Report 6299337-3 (Version None)
Quarter: 2009Q3

REPORT INFORMATION
  Report Type: 
  Country: None (occurrence: None)
  Receive Date: 20090806
  Receipt Date: 20090728
  Transmission Date: 20100115
  Serious: Yes (Other)
  Sender: FDA-Public Use
  Company Number: US-JNJFOC-20090600181

PATIENT
  Sex: Female
  Weight: 44.91 kg

DRUGS (5)
  1. PREZISTA [Suspect]
     Indication: HIV INFECTION
     Route: 048
  2. RITONAVIR [Concomitant]
     Indication: HIV INFECTION
     Route: 065
  3. VIREAD [Concomitant]
     Indication: HIV INFECTION
  4. RETROVIR [Concomitant]
     Indication: HIV INFECTION
     Route: 065
  5. DAPSONE [Concomitant]
     Route: 065

REACTIONS (2)
  - DRUG EXPOSURE DURING PREGNANCY [None]
  - SUPPRESSED LACTATION [None]
